FAERS Safety Report 7471409-7 (Version None)
Quarter: 2011Q2

REPORT INFORMATION
  Report Type: 
  Country: None (occurrence: None)
  Receive Date: 20110511
  Receipt Date: 20110505
  Transmission Date: 20111010
  Serious: No
  Sender: FDA-Public Use
  Company Number: US-BAYER-2011-038836

PATIENT
  Age: 92 Year
  Sex: Female

DRUGS (5)
  1. DIGOXIN [Concomitant]
     Dosage: HALF OF 1.25 TABLET
  2. AVELOX [Suspect]
     Indication: PNEUMONIA
     Dosage: 400 MG, QD
     Route: 048
     Dates: start: 20110505, end: 20110505
  3. LASIX [Concomitant]
     Dosage: 40 MG, UNK
  4. RAMIPRIL [Concomitant]
     Dosage: 2.5 MG, UNK
  5. LEVAQUIN [Concomitant]

REACTIONS (4)
  - MUSCULAR WEAKNESS [None]
  - DIARRHOEA [None]
  - BLOOD PRESSURE DECREASED [None]
  - DIZZINESS [None]
